FAERS Safety Report 6359405-4 (Version None)
Quarter: 2009Q3

REPORT INFORMATION
  Report Type: 
  Country: None (occurrence: None)
  Receive Date: 20090917
  Receipt Date: 20090914
  Transmission Date: 20100115
  Serious: Yes (Other)
  Sender: FDA-Public Use
  Company Number: US-AMGEN-US364387

PATIENT
  Sex: Male

DRUGS (3)
  1. NPLATE [Suspect]
     Indication: IDIOPATHIC THROMBOCYTOPENIC PURPURA
     Dates: start: 20090910
  2. PREDNISONE [Suspect]
     Route: 065
  3. SOLU-MEDROL [Concomitant]
     Route: 042

REACTIONS (1)
  - PLATELET COUNT DECREASED [None]
